FAERS Safety Report 4426328-7 (Version None)
Quarter: 2004Q3

REPORT INFORMATION
  Report Type: 
  Country: None (occurrence: None)
  Receive Date: 20040811
  Receipt Date: 20040802
  Transmission Date: 20050211
  Serious: Yes (Death)
  Sender: FDA-Public Use
  Company Number: 2004-BP-06389RO

PATIENT
  Age: 30 Year
  Sex: Male

DRUGS (1)
  1. METHOTREXATE [Suspect]
     Indication: DIFFUSE LARGE B-CELL LYMPHOMA
     Dosage: 12 MG X 1 DOSE , IT
     Route: 037

REACTIONS (4)
  - BRAIN HERNIATION [None]
  - BRAIN OEDEMA [None]
  - PLEOCYTOSIS [None]
  - PYREXIA [None]
